FAERS Safety Report 9188856 (Version 1)
Quarter: 2013Q1

REPORT INFORMATION
  Report Type: Report from Study
  Country: VE (occurrence: VE)
  Receive Date: 20130326
  Receipt Date: 20130326
  Transmission Date: 20140127
  Serious: Yes (Hospitalization, Other)
  Sender: FDA-Public Use
  Company Number: VE-ABBOTT-13P-178-1065943-00

PATIENT
  Sex: Male
  Weight: 75 kg

DRUGS (3)
  1. HUMIRA [Suspect]
     Indication: PSORIATIC ARTHROPATHY
     Route: 058
     Dates: start: 20091020, end: 20110615
  2. AZULFIDINE [Concomitant]
     Indication: PSORIATIC ARTHROPATHY
     Dosage: 1000 MG DAILY
     Route: 048
  3. ARAVA [Concomitant]
     Indication: PSORIATIC ARTHROPATHY
     Dosage: 20 MG DAILY
     Route: 048

REACTIONS (4)
  - Diverticulitis [Recovered/Resolved]
  - Abdominal distension [Recovered/Resolved]
  - Nausea [Recovered/Resolved]
  - Drug ineffective [Not Recovered/Not Resolved]
